FAERS Safety Report 21935888 (Version 2)
Quarter: 2023Q1

REPORT INFORMATION
  Report Type: Spontaneous
  Country: US (occurrence: US)
  Receive Date: 20230201
  Receipt Date: 20230222
  Transmission Date: 20230417
  Serious: Yes (Other)
  Sender: FDA-Public Use
  Company Number: US-BRISTOL-MYERS SQUIBB COMPANY-2023-012085

PATIENT
  Age: 56 Year
  Sex: Female
  Weight: 65.32 kg

DRUGS (4)
  1. LENALIDOMIDE [Suspect]
     Active Substance: LENALIDOMIDE
     Indication: Plasma cell myeloma
  2. CALCIUM [Concomitant]
     Active Substance: CALCIUM
     Indication: Product used for unknown indication
  3. VITAMIN K1 [Concomitant]
     Active Substance: PHYTONADIONE
     Indication: Product used for unknown indication
  4. AMLODIPINE BESYLATE [Concomitant]
     Active Substance: AMLODIPINE BESYLATE
     Indication: Product used for unknown indication

REACTIONS (6)
  - Illness [Unknown]
  - Immunodeficiency [Unknown]
  - Nasopharyngitis [Not Recovered/Not Resolved]
  - Hypoaesthesia [Unknown]
  - Muscle spasms [Recovering/Resolving]
  - Fall [Recovering/Resolving]
